FAERS Safety Report 8807227 (Version 1)
Quarter: 2012Q4

REPORT INFORMATION
  Report Type: 
  Country: US (occurrence: US)
  Receive Date: 20120925
  Receipt Date: 20120925
  Transmission Date: 20130627
  Serious: No
  Sender: FDA-Public Use
  Company Number: US-ASTRAZENECA-2012SE72140

PATIENT
  Age: 617 Month
  Sex: Female
  Weight: 74.4 kg

DRUGS (1)
  1. FASLODEX [Suspect]
     Indication: BONE NEOPLASM MALIGNANT
     Route: 030
     Dates: start: 201208

REACTIONS (5)
  - Abdominal pain [Recovered/Resolved]
  - Pain [Not Recovered/Not Resolved]
  - Weight decreased [Not Recovered/Not Resolved]
  - Fatigue [Not Recovered/Not Resolved]
  - Off label use [Unknown]
